FAERS Safety Report 9632727 (Version 4)
Quarter: 2013Q4

REPORT INFORMATION
  Report Type: Spontaneous
  Country: US (occurrence: US)
  Receive Date: 20131018
  Receipt Date: 20131220
  Transmission Date: 20140711
  Serious: Yes (Hospitalization, Other)
  Sender: FDA-Public Use
  Company Number: US-CELGENEUS-163-21880-13091264

PATIENT
  Age: 64 Year
  Sex: Female
  Weight: 79.8 kg

DRUGS (6)
  1. REVLIMID [Suspect]
     Indication: PLASMA CELL MYELOMA
     Dosage: 25 MILLIGRAM
     Route: 048
     Dates: start: 20130819, end: 201309
  2. REVLIMID [Suspect]
     Dosage: 15 MILLIGRAM
     Route: 048
     Dates: start: 201309
  3. CEPHALEXIN [Concomitant]
     Indication: PRODUCT USED FOR UNKNOWN INDICATION
     Route: 065
     Dates: start: 2013
  4. VELCADE [Concomitant]
     Indication: PLASMA CELL MYELOMA
     Route: 065
  5. DEXAMETHASONE [Concomitant]
     Indication: PLASMA CELL MYELOMA
     Route: 065
  6. ZOMETA [Concomitant]
     Indication: PRODUCT USED FOR UNKNOWN INDICATION
     Route: 065

REACTIONS (8)
  - Faecaloma [Recovered/Resolved]
  - Pneumonia [Unknown]
  - Stomatitis [Recovered/Resolved]
  - Nausea [Unknown]
  - Vomiting [Unknown]
  - Rash [Recovered/Resolved]
  - Anaemia [Unknown]
  - Cellulitis [Recovered/Resolved]
